FAERS Safety Report 24254333 (Version 1)
Quarter: 2024Q3

REPORT INFORMATION
  Report Type: Spontaneous
  Country: US (occurrence: US)
  Receive Date: 20240827
  Receipt Date: 20240827
  Transmission Date: 20241017
  Serious: Yes (Hospitalization)
  Sender: CIPLA
  Company Number: US-CIPLA LTD.-2024US09207

PATIENT

DRUGS (3)
  1. AMLODIPINE [Suspect]
     Active Substance: AMLODIPINE BESYLATE
     Dosage: 200 MG, UNK
     Route: 048
  2. WARFARIN [Suspect]
     Active Substance: WARFARIN
     Dosage: 400 MG, UNK
     Route: 048
  3. CALCIUM [Suspect]
     Active Substance: CALCIUM
     Indication: Intentional overdose
     Dosage: UNK
     Route: 042

REACTIONS (3)
  - Intentional overdose [Unknown]
  - Tissue injury [Unknown]
  - Rash [Unknown]
